FAERS Safety Report 8967962 (Version 1)
Quarter: 2012Q4

REPORT INFORMATION
  Report Type: 
  Country: FR (occurrence: FR)
  Receive Date: 20121218
  Receipt Date: 20121218
  Transmission Date: 20130627
  Serious: Yes (Hospitalization)
  Sender: FDA-Public Use
  Company Number: FR-BRISTOL-MYERS SQUIBB COMPANY-17196197

PATIENT
  Age: 69 Year
  Sex: Male

DRUGS (12)
  1. COAPROVEL [Suspect]
     Indication: HYPERTENSION
     Route: 048
  2. PREVISCAN [Suspect]
     Indication: CARDIOVASCULAR EVENT PROPHYLAXIS
     Dosage: scored tablet
  3. SERETIDE [Suspect]
     Indication: CHRONIC OBSTRUCTIVE PULMONARY DISEASE
     Dosage: 1 df= 2 puffs
     Route: 055
  4. LASILIX [Suspect]
     Indication: HYPERTENSION
     Route: 048
  5. DALACINE [Suspect]
     Indication: PNEUMONIA
     Dosage: solution for injection
     Route: 042
     Dates: start: 20120612, end: 20120625
  6. CLAMOXYL [Suspect]
     Route: 042
     Dates: start: 20120612
  7. INEXIUM [Suspect]
     Dosage: Gastro-resistant tablet
     Route: 048
     Dates: start: 20120521, end: 20120620
  8. VANCOCINE [Suspect]
     Route: 042
     Dates: start: 20120605, end: 20120615
  9. TAZOCILLINE [Suspect]
     Dosage: 2g/250mg, powder for solution for infusion
     Route: 042
     Dates: start: 20120605, end: 20120615
  10. FLAGYL [Suspect]
     Dosage: 0.5 %, solution for injection
     Route: 042
     Dates: start: 20120605, end: 20120615
  11. ROCEPHINE [Suspect]
     Route: 042
     Dates: start: 20120528, end: 20120607
  12. DIFFU-K [Concomitant]
     Indication: HYPOKALAEMIA
     Dosage: Caps
     Route: 048
     Dates: start: 20120521, end: 20120612

REACTIONS (2)
  - Agranulocytosis [Recovered/Resolved]
  - Pneumonia [Unknown]
